FAERS Safety Report 9051953 (Version 1)
Quarter: 2013Q1

REPORT INFORMATION
  Report Type: Report from Study
  Country: CA (occurrence: CA)
  Receive Date: 20130207
  Receipt Date: 20130207
  Transmission Date: 20140127
  Serious: Yes (Hospitalization)
  Sender: FDA-Public Use
  Company Number: CA-JNJFOC-20130115817

PATIENT
  Age: 63 None
  Sex: Female
  Weight: 55 kg

DRUGS (2)
  1. REMICADE [Suspect]
     Indication: CROHN^S DISEASE
     Dosage: LOADING DOSES 0,2 COMPLETED
     Route: 042
     Dates: start: 20121206
  2. PENTASA [Concomitant]
     Route: 048

REACTIONS (5)
  - Haematemesis [Recovered/Resolved]
  - Gastritis viral [Recovered/Resolved]
  - Upper gastrointestinal haemorrhage [Recovered/Resolved]
  - Diarrhoea [Recovered/Resolved]
  - Local swelling [Recovered/Resolved]
